FAERS Safety Report 14939922 (Version 2)
Quarter: 2018Q2

REPORT INFORMATION
  Report Type: Spontaneous
  Country: US (occurrence: US)
  Receive Date: 20180525
  Receipt Date: 20180607
  Transmission Date: 20180711
  Serious: Yes (Hospitalization, Other)
  Sender: FDA-Public Use
  Company Number: US-PFIZER INC-2018209160

PATIENT
  Age: 69 Year
  Sex: Female
  Weight: 79.83 kg

DRUGS (2)
  1. PHENYTOIN SODIUM. [Suspect]
     Active Substance: PHENYTOIN SODIUM
     Indication: PARTIAL SEIZURES
     Dosage: 400MG ONCE DAILY AT NIGHT
     Route: 048
     Dates: start: 2007, end: 2018
  2. PHENYTOIN SODIUM. [Suspect]
     Active Substance: PHENYTOIN SODIUM
     Dosage: 400MG ONCE DAILY AT NIGHT
     Route: 048
     Dates: start: 2007

REACTIONS (6)
  - Pulmonary oedema [Unknown]
  - Cough [Unknown]
  - Lupus-like syndrome [Not Recovered/Not Resolved]
  - Pleuritic pain [Unknown]
  - Pleural effusion [Unknown]
  - Malaise [Unknown]

NARRATIVE: CASE EVENT DATE: 20180215
